FAERS Safety Report 8155814-1 (Version None)
Quarter: 2012Q1

REPORT INFORMATION
  Report Type: 
  Country: None (occurrence: None)
  Receive Date: 20120222
  Receipt Date: 20120220
  Transmission Date: 20120608
  Serious: Yes (Other)
  Sender: FDA-Public Use
  Company Number: DE-AMGEN-DEUSP2012008385

PATIENT
  Sex: Male

DRUGS (1)
  1. CINACALCET HYDROCHLORIDE [Suspect]
     Indication: PRODUCT USED FOR UNKNOWN INDICATION
     Dosage: 60 MG, UNK

REACTIONS (2)
  - CARDIAC FAILURE [None]
  - CARDIOMYOPATHY [None]
